FAERS Safety Report 19157274 (Version 2)
Quarter: 2021Q2

REPORT INFORMATION
  Report Type: Report from Study
  Country: US (occurrence: US)
  Receive Date: 20210420
  Receipt Date: 20210426
  Transmission Date: 20210717
  Serious: No
  Sender: FDA-Public Use
  Company Number: US-AGIOS-2104US02675

PATIENT

DRUGS (1)
  1. TIBSOVO [Suspect]
     Active Substance: IVOSIDENIB
     Indication: CANCER PAIN
     Dosage: 250 MILLIGRAM, BID
     Route: 048
     Dates: start: 20210329

REACTIONS (5)
  - Weight increased [Unknown]
  - Abdominal distension [Unknown]
  - Nausea [Unknown]
  - Joint swelling [Unknown]
  - Off label use [Unknown]

NARRATIVE: CASE EVENT DATE: 20210329
